FAERS Safety Report 4499339-3 (Version None)
Quarter: 2004Q4

REPORT INFORMATION
  Report Type: 
  Country: None (occurrence: None)
  Receive Date: 20041111
  Receipt Date: 20040629
  Transmission Date: 20050328
  Serious: Yes (Disabling)
  Sender: FDA-Public Use
  Company Number: GB-MERCK-0410GBR00095

PATIENT
  Age: 15 Year
  Sex: Male
  Weight: 58 kg

DRUGS (5)
  1. SINGULAIR [Suspect]
     Indication: ASTHMA
     Route: 048
     Dates: start: 20030901, end: 20040701
  2. FLUTICASONE PROPIONATE AND SALMETEROL XINAFOATE [Concomitant]
     Route: 055
  3. ALBUTEROL SULFATE [Concomitant]
     Indication: ASTHMA
     Route: 055
  4. FLUTICASONE PROPIONATE [Concomitant]
     Indication: RHINITIS ALLERGIC
     Route: 061
  5. CETIRIZINE HYDROCHLORIDE [Concomitant]
     Route: 048

REACTIONS (2)
  - ALOPECIA [None]
  - URTICARIA [None]
